FAERS Safety Report 22061302 (Version 1)
Quarter: 2023Q1

REPORT INFORMATION
  Report Type: Report from Study
  Country: US (occurrence: US)
  Receive Date: 20230304
  Receipt Date: 20230304
  Transmission Date: 20230418
  Serious: No
  Sender: FDA-Public Use
  Company Number: US-002147023-NVSC2023US048947

PATIENT
  Age: 44 Year
  Sex: Female

DRUGS (2)
  1. IMATINIB [Suspect]
     Active Substance: IMATINIB
     Indication: Chronic myeloid leukaemia
     Dosage: UNK
     Route: 065
  2. INTERFERON ALFA-1A [Suspect]
     Active Substance: INTERFERON ALFA-1A
     Indication: Product used for unknown indication
     Dosage: UNK
     Route: 065

REACTIONS (4)
  - Social anxiety disorder [Unknown]
  - Quality of life decreased [Unknown]
  - Exercise tolerance decreased [Unknown]
  - Fatigue [Unknown]
